FAERS Safety Report 6759848-0 (Version None)
Quarter: 2010Q2

REPORT INFORMATION
  Report Type: 
  Country: None (occurrence: None)
  Receive Date: 20100608
  Receipt Date: 20100528
  Transmission Date: 20101027
  Serious: Yes (Hospitalization)
  Sender: FDA-Public Use
  Company Number: PHHY2010DE20206

PATIENT
  Sex: Male
  Weight: 78 kg

DRUGS (11)
  1. RASILEZ HCT [Suspect]
     Indication: HYPERTENSION
     Dosage: 300/12 MG PER DAY ONCE DAILY
     Route: 048
     Dates: start: 20090331
  2. EXFORGE [Suspect]
     Indication: HYPERTENSION
     Dosage: 1 DF PER DAY
     Route: 048
     Dates: start: 20090101
  3. NO TREATMENT RECEIVED NOMED [Suspect]
     Dosage: UNK
  4. ACE INHIBITOR NOS [Concomitant]
     Dosage: UNK
     Dates: start: 20090331
  5. THIENOPYRIDINE [Concomitant]
     Dosage: UNK
  6. ALLOPURINOL [Concomitant]
     Dosage: 300 MG PER DAY
     Dates: start: 20080101
  7. SIMVABETA [Concomitant]
     Dosage: 40 MG PER DAY
     Dates: start: 20090101
  8. SPIRONOLACTONE [Concomitant]
     Dosage: 50 MG PER DAY
     Dates: start: 20090131
  9. ASPIRIN [Concomitant]
     Dosage: 100 MG PER DAY
     Dates: start: 20080101
  10. MARCUMAR [Concomitant]
     Dosage: 1.5 MG PER DAY
     Dates: start: 20090101
  11. ANTICOAGULANTS [Concomitant]
     Route: 048

REACTIONS (2)
  - BLOOD GLUCOSE INCREASED [None]
  - FEMORAL ARTERY OCCLUSION [None]
